FAERS Safety Report 8893176 (Version 1)
Quarter: 2012Q4

REPORT INFORMATION
  Report Type: Spontaneous
  Country: US (occurrence: None)
  Receive Date: 20121106
  Receipt Date: 20121106
  Transmission Date: 20130627
  Serious: Yes (Other)
  Sender: FDA-Public Use
  Company Number: None

PATIENT
  Sex: Female

DRUGS (1)
  1. REMICADE [Suspect]
     Indication: RHEUMATOID ARTHRITIS
     Dosage: 400mg every 8 weeks iv
     Route: 042
     Dates: start: 20121102

REACTIONS (4)
  - Infusion related reaction [None]
  - Flushing [None]
  - Dizziness [None]
  - Dyspnoea [None]
